FAERS Safety Report 8433216-8 (Version None)
Quarter: 2012Q2

REPORT INFORMATION
  Report Type: 
  Country: None (occurrence: None)
  Receive Date: 20120613
  Receipt Date: 20120606
  Transmission Date: 20120825
  Serious: Yes (Other)
  Sender: FDA-Public Use
  Company Number: AU-GLAXOSMITHKLINE-B0807429A

PATIENT
  Age: 4 Year
  Sex: Male

DRUGS (1)
  1. FLUTICASONE PROPIONATE [Suspect]
     Indication: PRODUCT USED FOR UNKNOWN INDICATION
     Route: 065

REACTIONS (6)
  - LETHARGY [None]
  - URTICARIA [None]
  - SWELLING [None]
  - ANAPHYLACTIC REACTION [None]
  - MALAISE [None]
  - PYREXIA [None]
